FAERS Safety Report 9350565 (Version 1)
Quarter: 2013Q2

REPORT INFORMATION
  Report Type: Spontaneous
  Country: CO (occurrence: CO)
  Receive Date: 20130617
  Receipt Date: 20130617
  Transmission Date: 20140414
  Serious: Yes (Hospitalization)
  Sender: FDA-Public Use
  Company Number: CO-MERCK-2012SP015405

PATIENT
  Age: 76 Year
  Sex: Female

DRUGS (10)
  1. PEG-INTRON [Suspect]
     Indication: HEPATITIS C
     Dosage: 100 MCG/AMPULE
     Route: 065
     Dates: start: 20120229, end: 201208
  2. RIBAVIRIN [Suspect]
     Dosage: UNK
     Route: 048
  3. LEVOTHYROXINE SODIUM [Concomitant]
     Dosage: UNK
     Route: 048
  4. FUROSEMIDE [Concomitant]
     Dosage: UNK
     Route: 048
  5. ORGACARPIN [Concomitant]
     Dosage: UNK
  6. VITAMIN B COMPLEX [Concomitant]
     Dosage: UNK
  7. FOLIC ACID [Concomitant]
     Dosage: UNK
  8. CALCIUM CARBONATE [Concomitant]
  9. VITAMIN D (UNSPECIFIED) [Concomitant]
  10. EPOETIN [Concomitant]
     Dosage: 200 MG, QW

REACTIONS (7)
  - Abdominal pain [Recovered/Resolved]
  - Pyrexia [Recovered/Resolved]
  - Haematology test abnormal [Recovered/Resolved]
  - Pallor [Recovered/Resolved]
  - Asthenia [Recovered/Resolved]
  - Blood pressure fluctuation [Unknown]
  - Haemoglobin decreased [Unknown]
